FAERS Safety Report 14306370 (Version 1)
Quarter: 2017Q4

REPORT INFORMATION
  Report Type: Report from Study
  Country: US (occurrence: US)
  Receive Date: 20171220
  Receipt Date: 20171220
  Transmission Date: 20180321
  Serious: No
  Sender: FDA-Public Use
  Company Number: US-ALEXION PHARMACEUTICALS INC.-A201713376

PATIENT
  Age: 12 Year
  Sex: Female

DRUGS (2)
  1. STRENSIQ [Suspect]
     Active Substance: ASFOTASE ALFA
     Dosage: 0.7 UNK OF 40 UNK, TIW
     Route: 065
     Dates: start: 201602
  2. STRENSIQ [Suspect]
     Active Substance: ASFOTASE ALFA
     Indication: PRODUCT USED FOR UNKNOWN INDICATION
     Dosage: 0.8 UNK OF 80 UNK, TIW
     Route: 065
     Dates: start: 201602

REACTIONS (4)
  - Injection site reaction [Recovering/Resolving]
  - Gait disturbance [Unknown]
  - Urticaria [Recovering/Resolving]
  - Pain [Unknown]

NARRATIVE: CASE EVENT DATE: 201602
